FAERS Safety Report 10149207 (Version 1)
Quarter: 2014Q2

REPORT INFORMATION
  Report Type: Spontaneous
  Country: US (occurrence: None)
  Receive Date: 20140501
  Receipt Date: 20140501
  Transmission Date: 20141212
  Serious: Yes (Hospitalization)
  Sender: FDA-Public Use
  Company Number: None

PATIENT
  Age: 82 Year
  Sex: Female

DRUGS (8)
  1. WARFARIN [Suspect]
     Indication: ATRIAL FIBRILLATION
     Route: 048
     Dates: start: 20130624, end: 20130624
  2. AMIODARONE [Concomitant]
  3. OLMESARTAN [Concomitant]
  4. DOXAZOSIN [Concomitant]
  5. FUROSEMIDE [Concomitant]
  6. METOPROLOL TARTRATE [Concomitant]
  7. PRAVASTATIN [Concomitant]
  8. VERAPAMIL [Concomitant]

REACTIONS (5)
  - Chest discomfort [None]
  - Haematochezia [None]
  - International normalised ratio increased [None]
  - Haemoglobin decreased [None]
  - Medication monitoring error [None]
